FAERS Safety Report 16327011 (Version 1)
Quarter: 2019Q2

REPORT INFORMATION
  Report Type: Spontaneous
  Country: GB (occurrence: GB)
  Receive Date: 20190517
  Receipt Date: 20190517
  Transmission Date: 20190711
  Serious: Yes (Other)
  Sender: FDA-Public Use
  Company Number: GB-MYLANLABS-2019M1046223

PATIENT
  Age: 69 Year
  Sex: Male
  Weight: 93.88 kg

DRUGS (6)
  1. TRAMADOL. [Suspect]
     Active Substance: TRAMADOL
     Indication: BACK PAIN
     Dosage: 200 MILLIGRAM, QD
     Route: 048
     Dates: end: 20180922
  2. ATORVASTATIN [Concomitant]
     Active Substance: ATORVASTATIN
  3. PARACETAMOL [Concomitant]
     Active Substance: ACETAMINOPHEN
  4. ISOSORBIDE MONONITRATE. [Concomitant]
     Active Substance: ISOSORBIDE MONONITRATE
  5. BISOPROLOL FUMARATE. [Concomitant]
     Active Substance: BISOPROLOL FUMARATE
  6. CANDESARTAN CILEXETIL. [Concomitant]
     Active Substance: CANDESARTAN CILEXETIL

REACTIONS (12)
  - Headache [Unknown]
  - Tremor [Unknown]
  - Withdrawal syndrome [Unknown]
  - Sleep disorder [Unknown]
  - Anxiety [Unknown]
  - Lethargy [Unknown]
  - Night sweats [Unknown]
  - Depression [Unknown]
  - Confusional state [Unknown]
  - Rhinorrhoea [Unknown]
  - Vision blurred [Unknown]
  - Fatigue [Unknown]
